FAERS Safety Report 23415555 (Version 1)
Quarter: 2024Q1

REPORT INFORMATION
  Report Type: Spontaneous
  Country: GB (occurrence: GB)
  Receive Date: 20240118
  Receipt Date: 20240118
  Transmission Date: 20240410
  Serious: Yes (Hospitalization, Other)
  Sender: FDA-Public Use
  Company Number: None

PATIENT
  Age: 28 Year
  Weight: 57 kg

DRUGS (2)
  1. BECLOMETHASONE [Suspect]
     Active Substance: BECLOMETHASONE
     Indication: Asthma
     Dosage: 100 MG TWICE A DAY; DURATION: 158 DAYS
     Route: 065
     Dates: end: 20240106
  2. ALBUTEROL [Concomitant]
     Active Substance: ALBUTEROL
     Indication: Asthma
     Dosage: 100 MG TWICE A DAY; DURATION: 158 DAYS
     Dates: start: 20230801, end: 20240106

REACTIONS (17)
  - Panic attack [Unknown]
  - Tremor [Unknown]
  - Glossodynia [Unknown]
  - Increased appetite [Not Recovered/Not Resolved]
  - Wheezing [Unknown]
  - Nausea [Not Recovered/Not Resolved]
  - Anxiety [Unknown]
  - Pruritus [Not Recovered/Not Resolved]
  - Major depression [Unknown]
  - Insomnia [Not Recovered/Not Resolved]
  - Heart rate increased [Not Recovered/Not Resolved]
  - Hypoaesthesia [Unknown]
  - Headache [Not Recovered/Not Resolved]
  - Cough [Not Recovered/Not Resolved]
  - Skin disorder [Unknown]
  - Suicidal ideation [Unknown]
  - Sneezing [Not Recovered/Not Resolved]

NARRATIVE: CASE EVENT DATE: 20240101
